FAERS Safety Report 7603212-9 (Version None)
Quarter: 2011Q3

REPORT INFORMATION
  Report Type: 
  Country: None (occurrence: None)
  Receive Date: 20110712
  Receipt Date: 20110330
  Transmission Date: 20111222
  Serious: Yes (Other)
  Sender: FDA-Public Use
  Company Number: AT-JNJFOC-20110702064

PATIENT
  Age: 43 Year
  Sex: Female

DRUGS (3)
  1. REMICADE [Suspect]
     Indication: CROHN'S DISEASE
     Route: 042
     Dates: start: 20110219
  2. SYNACTHEN [Concomitant]
     Dates: start: 20110601
  3. THEOPHYLLINE [Concomitant]

REACTIONS (3)
  - EYELID OEDEMA [None]
  - PURPURA [None]
  - HEADACHE [None]
